FAERS Safety Report 12210812 (Version 1)
Quarter: 2016Q1

REPORT INFORMATION
  Report Type: Spontaneous
  Country: US (occurrence: US)
  Receive Date: 20160325
  Receipt Date: 20160325
  Transmission Date: 20160526
  Serious: No
  Sender: FDA-Public Use
  Company Number: US-WARNER CHILCOTT, LLC-1049682

PATIENT
  Sex: Female

DRUGS (11)
  1. CARAFATE [Concomitant]
     Active Substance: SUCRALFATE
  2. TRAMADOL. [Concomitant]
     Active Substance: TRAMADOL
  3. ZOFRAN [Concomitant]
     Active Substance: ONDANSETRON HYDROCHLORIDE
  4. ADVAIR HFA [Suspect]
     Active Substance: FLUTICASONE PROPIONATE\SALMETEROL XINAFOATE
     Route: 055
  5. ACTONEL [Suspect]
     Active Substance: RISEDRONATE SODIUM
     Indication: ARTHRITIS
     Route: 048
  6. VENTOLIN HFA [Suspect]
     Active Substance: ALBUTEROL SULFATE
     Route: 055
  7. PROAIR HFA [Suspect]
     Active Substance: ALBUTEROL SULFATE
  8. BENTYL [Concomitant]
     Active Substance: DICYCLOMINE HYDROCHLORIDE
  9. NORVASC [Concomitant]
     Active Substance: AMLODIPINE BESYLATE
  10. XANAX [Concomitant]
     Active Substance: ALPRAZOLAM
  11. HYDROCORTISONE. [Concomitant]
     Active Substance: HYDROCORTISONE

REACTIONS (14)
  - Weight decreased [Unknown]
  - Product use issue [Unknown]
  - Arthritis [Unknown]
  - Decreased appetite [Unknown]
  - Asthma [Unknown]
  - Bone disorder [Unknown]
  - Tooth discolouration [Unknown]
  - Tooth fracture [Unknown]
  - Dry mouth [Unknown]
  - Cough [Unknown]
  - Nausea [Unknown]
  - Aptyalism [Unknown]
  - Dupuytren^s contracture [Not Recovered/Not Resolved]
  - Tooth disorder [Unknown]
